FAERS Safety Report 6912983-6 (Version None)
Quarter: 2010Q3

REPORT INFORMATION
  Report Type: 
  Country: None (occurrence: None)
  Receive Date: 20100806
  Receipt Date: 20090511
  Transmission Date: 20110219
  Serious: Yes (Other)
  Sender: FDA-Public Use
  Company Number: US-PFIZER INC-2009212389

PATIENT
  Sex: Female
  Weight: 63.492 kg

DRUGS (1)
  1. DILANTIN-125 [Suspect]
     Indication: GRAND MAL CONVULSION
     Dosage: 200 MG, 1X/DAY

REACTIONS (5)
  - FATIGUE [None]
  - GRAND MAL CONVULSION [None]
  - HYPERAESTHESIA [None]
  - TONGUE BITING [None]
  - URINARY INCONTINENCE [None]
